FAERS Safety Report 24751515 (Version 1)
Quarter: 2024Q4

REPORT INFORMATION
  Report Type: Report from Study
  Country: BR (occurrence: BR)
  Receive Date: 20241219
  Receipt Date: 20241219
  Transmission Date: 20250115
  Serious: Yes (Other)
  Sender: CELLTRION
  Company Number: BR-CELLTRION INC.-2022BR019914

PATIENT

DRUGS (11)
  1. INFLIXIMAB-DYYB [Suspect]
     Active Substance: INFLIXIMAB-DYYB
     Indication: Crohn^s disease
     Dosage: 5 AMPOULES EVERY 2 MONTHS
     Route: 042
     Dates: start: 20220507
  2. INFLIXIMAB-DYYB [Suspect]
     Active Substance: INFLIXIMAB-DYYB
     Dosage: 5 AMPOULES EVERY 8 WEEKS
     Route: 042
     Dates: start: 202206
  3. INFLIXIMAB-DYYB [Suspect]
     Active Substance: INFLIXIMAB-DYYB
     Dosage: 5 AMPOULES EVERY 2 MONTHS
     Route: 042
     Dates: start: 20230321
  4. INFLIXIMAB-DYYB [Suspect]
     Active Substance: INFLIXIMAB-DYYB
     Dosage: 5 AMPOULES EVERY 8 WEEKS
     Route: 042
     Dates: start: 20230518
  5. INFLIXIMAB-DYYB [Suspect]
     Active Substance: INFLIXIMAB-DYYB
     Dosage: 5 AMPOULES EVERY 8 WEEKS
     Route: 042
     Dates: start: 20241204
  6. DAPAGLIFLOZIN [Concomitant]
     Active Substance: DAPAGLIFLOZIN
     Indication: Diabetes mellitus
     Dosage: 1 TABLET A DAY
     Route: 048
  7. DIOVAN HCT [Concomitant]
     Active Substance: HYDROCHLOROTHIAZIDE\VALSARTAN
     Indication: Hypertension
     Dosage: 1 TABLET PER DAY; START: 2 YEARS AGO
     Route: 048
  8. DPREV [Concomitant]
     Indication: Supplementation therapy
     Dosage: 1 TABLET EVERY FORNIGHT/EVERY 15 DAYS
     Route: 048
  9. JARDIANCE [Concomitant]
     Active Substance: EMPAGLIFLOZIN
     Indication: Diabetes mellitus
     Dosage: 1 TABLET PER DAY (START DATE: 2 YEARS AGO)
     Route: 048
  10. NATIFA PRO [Concomitant]
     Indication: Hormone replacement therapy
     Dosage: 1 TABLET A DAY
     Route: 048
  11. IBANDRONATE SODIUM [Concomitant]
     Active Substance: IBANDRONATE SODIUM
     Indication: Osteopenia
     Dosage: EVERY 1 MONTH (START DATE: 2 YEARS AGO)
     Route: 048

REACTIONS (10)
  - Laryngeal stenosis [Unknown]
  - Feeling hot [Recovered/Resolved]
  - Furuncle [Recovered/Resolved]
  - Erythema [Recovered/Resolved]
  - Flushing [Unknown]
  - Contraindication to medical treatment [Unknown]
  - Product availability issue [Unknown]
  - Documented hypersensitivity to administered product [Unknown]
  - Intentional dose omission [Unknown]
  - Therapy interrupted [Unknown]

NARRATIVE: CASE EVENT DATE: 20221123
